FAERS Safety Report 8241500-6 (Version None)
Quarter: 2012Q1

REPORT INFORMATION
  Report Type: 
  Country: None (occurrence: None)
  Receive Date: 20120328
  Receipt Date: 20110415
  Transmission Date: 20120608
  Serious: No
  Sender: FDA-Public Use
  Company Number: US-COVIDIEN/TYCO HEALTHCARE/MALLINCKRODT-T201100787

PATIENT
  Sex: Female

DRUGS (1)
  1. METHADOSE [Suspect]
     Dosage: UNK

REACTIONS (1)
  - UNEVALUABLE EVENT [None]
